FAERS Safety Report 5248236-4 (Version None)
Quarter: 2007Q1

REPORT INFORMATION
  Report Type: 
  Country: None (occurrence: None)
  Receive Date: 20070227
  Receipt Date: 20060831
  Transmission Date: 20070707
  Serious: No
  Sender: FDA-Public Use
  Company Number: US-BRISTOL-MYERS SQUIBB COMPANY-13494349

PATIENT
  Sex: Female

DRUGS (4)
  1. GLUCOPHAGE [Suspect]
     Indication: DIABETES MELLITUS
     Dates: start: 20060101
  2. LASIX [Concomitant]
  3. DIGOXIN [Concomitant]
  4. COREG [Concomitant]

REACTIONS (2)
  - ANOREXIA [None]
  - DYSGEUSIA [None]
